FAERS Safety Report 5659042-0 (Version None)
Quarter: 2008Q1

REPORT INFORMATION
  Report Type: 
  Country: None (occurrence: None)
  Receive Date: 20080310
  Receipt Date: 20070727
  Transmission Date: 20080703
  Serious: Yes (Other)
  Sender: FDA-Public Use
  Company Number: US-BAYER-200711846BCC

PATIENT
  Age: 41 Year
  Sex: Male
  Weight: 113 kg

DRUGS (3)
  1. ALEVE [Suspect]
     Indication: GOUT
     Dosage: UNIT DOSE: 220 MG
     Route: 048
     Dates: start: 20070607, end: 20070607
  2. COLCHICINE [Concomitant]
  3. WELLBUTRIN [Concomitant]

REACTIONS (3)
  - DIARRHOEA [None]
  - DIARRHOEA HAEMORRHAGIC [None]
  - VOMITING [None]
